FAERS Safety Report 14348281 (Version 3)
Quarter: 2019Q4

REPORT INFORMATION
  Report Type: Report from Study
  Country: US (occurrence: US)
  Receive Date: 20180103
  Receipt Date: 20191105
  Transmission Date: 20200122
  Serious: Yes (Other)
  Sender: FDA-Public Use
  Company Number: US-BAUSCH-BL-2017-035927

PATIENT
  Sex: Female

DRUGS (1)
  1. SECONAL SODIUM [Suspect]
     Active Substance: SECOBARBITAL SODIUM
     Indication: SLEEP DISORDER
     Route: 065

REACTIONS (2)
  - Spinal cord neoplasm [Unknown]
  - Fall [Unknown]

NARRATIVE: CASE EVENT DATE: 2011
